FAERS Safety Report 4980118-5 (Version None)
Quarter: 2006Q2

REPORT INFORMATION
  Report Type: 
  Country: None (occurrence: None)
  Receive Date: 20060421
  Receipt Date: 20050711
  Transmission Date: 20061013
  Serious: Yes (Hospitalization)
  Sender: FDA-Public Use
  Company Number: US-MERCK-0507USA01521

PATIENT
  Age: 61 Year
  Sex: Male
  Weight: 116 kg

DRUGS (5)
  1. VIOXX [Suspect]
     Indication: ARTHRITIS
     Route: 048
     Dates: start: 19990101, end: 20040930
  2. VIOXX [Suspect]
     Route: 065
  3. HYZAAR [Concomitant]
     Route: 065
  4. BUSPAR [Concomitant]
     Route: 065
  5. PREVACID [Concomitant]
     Route: 065

REACTIONS (15)
  - ACUTE MYOCARDIAL INFARCTION [None]
  - ANXIETY [None]
  - ARTERIOSCLEROSIS CORONARY ARTERY [None]
  - CHEST PAIN [None]
  - DIARRHOEA [None]
  - DIVERTICULITIS [None]
  - EMOTIONAL DISTRESS [None]
  - FEAR [None]
  - GLUCOSE TOLERANCE IMPAIRED [None]
  - HYPERLIPIDAEMIA [None]
  - HYPERTENSION [None]
  - INTERVERTEBRAL DISC DISORDER [None]
  - IRON DEFICIENCY ANAEMIA [None]
  - PAIN [None]
  - PELVIC ABSCESS [None]
